FAERS Safety Report 20831223 (Version 2)
Quarter: 2022Q2

REPORT INFORMATION
  Report Type: Spontaneous
  Country: US (occurrence: US)
  Receive Date: 20220515
  Receipt Date: 20220630
  Transmission Date: 20220721
  Serious: No
  Sender: FDA-Public Use
  Company Number: US-JNJFOC-20220520324

PATIENT
  Age: 71 Year
  Sex: Female
  Weight: 59 kg

DRUGS (1)
  1. SIMPONI [Suspect]
     Active Substance: GOLIMUMAB
     Indication: Arthritis
     Dosage: 50.00 MG /  0.50 ML
     Route: 058

REACTIONS (3)
  - Drug delivery system malfunction [Unknown]
  - Product dose omission issue [Unknown]
  - Fine motor skill dysfunction [Unknown]

NARRATIVE: CASE EVENT DATE: 20220510
